FAERS Safety Report 21314455 (Version 2)
Quarter: 2022Q3

REPORT INFORMATION
  Report Type: Spontaneous
  Country: AU (occurrence: AU)
  Receive Date: 20220909
  Receipt Date: 20220929
  Transmission Date: 20221027
  Serious: Yes (Other)
  Sender: FDA-Public Use
  Company Number: AU-TEVA-2022-AU-2070639

PATIENT
  Sex: Male

DRUGS (2)
  1. IMATINIB [Suspect]
     Active Substance: IMATINIB
     Indication: Chronic myeloid leukaemia
     Dates: start: 20050106, end: 20080106
  2. IMATINIB [Suspect]
     Active Substance: IMATINIB
     Indication: Myeloid leukaemia

REACTIONS (2)
  - Cardiovascular disorder [Unknown]
  - Drug intolerance [Unknown]
